FAERS Safety Report 8073239-4 (Version None)
Quarter: 2012Q1

REPORT INFORMATION
  Report Type: 
  Country: None (occurrence: None)
  Receive Date: 20120126
  Receipt Date: 20120123
  Transmission Date: 20120608
  Serious: Yes (Other)
  Sender: FDA-Public Use
  Company Number: PHEH2012US001978

PATIENT
  Sex: Male

DRUGS (2)
  1. VITAMINS NOS [Concomitant]
  2. CLOZARIL [Suspect]

REACTIONS (2)
  - RENAL DISORDER [None]
  - AGGRESSION [None]
